FAERS Safety Report 9869896 (Version 1)
Quarter: 2014Q1

REPORT INFORMATION
  Report Type: Spontaneous
  Country: ES (occurrence: ES)
  Receive Date: 20140205
  Receipt Date: 20140205
  Transmission Date: 20141002
  Serious: Yes (Hospitalization)
  Sender: FDA-Public Use
  Company Number: ES-009507513-1402ESP000575

PATIENT
  Age: 5 Year
  Sex: Female

DRUGS (1)
  1. SINGULAIR 4 MG GRANULADO [Suspect]
     Indication: ASTHMA
     Route: 048
     Dates: start: 20130320, end: 20140123

REACTIONS (6)
  - Synovitis [Recovered/Resolved]
  - Myalgia [Recovered/Resolved]
  - Arthralgia [Recovered/Resolved]
  - Headache [Recovered/Resolved]
  - Insomnia [Recovered/Resolved]
  - Irritability [Recovered/Resolved]
